FAERS Safety Report 19147180 (Version 2)
Quarter: 2021Q2

REPORT INFORMATION
  Report Type: Report from Study
  Country: None (occurrence: JP)
  Receive Date: 20210416
  Receipt Date: 20210429
  Transmission Date: 20210717
  Serious: Yes (Hospitalization)
  Sender: FDA-Public Use
  Company Number: JP-ABBVIE-21P-087-3854380-00

PATIENT
  Age: 59 Year
  Sex: Male
  Weight: 52.9 kg

DRUGS (45)
  1. DENOSALIN 1 [Concomitant]
     Route: 042
     Dates: start: 20210225, end: 20210227
  2. CALONAL TAB [Concomitant]
     Indication: HEADACHE
  3. FEBURIC TABLETS [Concomitant]
     Active Substance: FEBUXOSTAT
     Indication: PROPHYLAXIS
     Route: 048
     Dates: start: 20210312
  4. FEBUXOSTAT. [Concomitant]
     Active Substance: FEBUXOSTAT
     Indication: PROPHYLAXIS
     Route: 048
     Dates: start: 20210220, end: 20210311
  5. VENETOCLAX. [Suspect]
     Active Substance: VENETOCLAX
     Indication: MANTLE CELL LYMPHOMA
     Route: 048
     Dates: start: 20210222, end: 20210228
  6. VENETOCLAX. [Suspect]
     Active Substance: VENETOCLAX
     Route: 048
     Dates: start: 20210309, end: 20210315
  7. DENOSALIN 1 [Concomitant]
     Route: 042
     Dates: start: 20210221, end: 20210223
  8. CALONAL TAB [Concomitant]
     Indication: HAEMORRHOIDS
     Route: 048
     Dates: start: 202101
  9. HIRUDOID LOTION [Concomitant]
     Indication: ECZEMA ASTEATOTIC
     Dosage: DOSE; 1 APPLICATION
     Route: 061
     Dates: start: 20210220
  10. VENETOCLAX. [Suspect]
     Active Substance: VENETOCLAX
     Route: 048
     Dates: start: 20210327, end: 20210327
  11. NORMAL SALINE SOLUTION (0.9% SODIUM CHLORIDE) [Concomitant]
     Route: 042
     Dates: start: 20210223, end: 20210223
  12. DENOSALIN 1 [Concomitant]
     Indication: PROPHYLAXIS
     Route: 042
     Dates: start: 20210220, end: 20210220
  13. DENOSALIN 1 [Concomitant]
     Route: 042
     Dates: start: 20210224, end: 20210224
  14. DENOSALIN 1 [Concomitant]
     Route: 042
     Dates: start: 20210303, end: 20210303
  15. SOLDEM 3A [Concomitant]
     Active Substance: CARBOHYDRATES\POTASSIUM CHLORIDE\SODIUM CHLORIDE\SODIUM LACTATE
     Indication: PROPHYLAXIS
     Route: 042
     Dates: start: 20210223, end: 20210223
  16. CALONAL TAB [Concomitant]
     Indication: ALLOGENIC BONE MARROW TRANSPLANTATION THERAPY
  17. CALONAL TAB [Concomitant]
     Indication: TOOTHACHE
  18. LASIX [Concomitant]
     Active Substance: FUROSEMIDE
     Indication: OEDEMA PERIPHERAL
     Route: 042
     Dates: start: 20210222, end: 20210315
  19. POTASSIUM CHLORIDE SR TABLETS [Concomitant]
     Indication: HYPOKALAEMIA
     Route: 048
     Dates: start: 20210330, end: 20210404
  20. DENOSALIN 1 [Concomitant]
     Route: 042
     Dates: start: 20210228, end: 20210302
  21. SOLDEM 3A [Concomitant]
     Active Substance: CARBOHYDRATES\POTASSIUM CHLORIDE\SODIUM CHLORIDE\SODIUM LACTATE
     Dates: start: 20210227, end: 20210227
  22. XYLOCAINE [Concomitant]
     Active Substance: LIDOCAINE HYDROCHLORIDE
     Indication: HAEMORRHOIDS
     Dosage: DOSE; 1 APPLICATION
     Route: 054
     Dates: start: 20210222
  23. VASELINE PURE [Concomitant]
     Active Substance: PETROLATUM
     Indication: ECZEMA ASTEATOTIC
     Dosage: DOSE; 1 APPLICATION
     Route: 061
     Dates: start: 20210226
  24. MOHRUS [Concomitant]
     Active Substance: KETOPROFEN
     Indication: MUSCLE SPASMS
     Dosage: DOSE; 1 SHEET
     Route: 061
     Dates: start: 20210305
  25. LASIX [Concomitant]
     Active Substance: FUROSEMIDE
     Route: 048
     Dates: start: 20210323
  26. VENETOCLAX. [Suspect]
     Active Substance: VENETOCLAX
     Route: 048
     Dates: start: 20210302, end: 20210308
  27. VENETOCLAX. [Suspect]
     Active Substance: VENETOCLAX
     Route: 048
     Dates: start: 20210323, end: 20210326
  28. IBRUTINIB [Suspect]
     Active Substance: IBRUTINIB
     Route: 048
     Dates: start: 20210423
  29. NORMAL SALINE SOLUTION (0.9% SODIUM CHLORIDE) [Concomitant]
     Indication: PROPHYLAXIS
     Route: 042
     Dates: start: 20210220, end: 20210220
  30. DENOSALIN 1 [Concomitant]
     Route: 042
     Dates: start: 20210304, end: 20210308
  31. FAMOTIDINE TABLETS [Concomitant]
     Active Substance: FAMOTIDINE
     Indication: PROPHYLAXIS AGAINST GASTROINTESTINAL ULCER
     Route: 048
     Dates: start: 201207
  32. MAGNESIUM OXIDE TAB [Concomitant]
     Indication: CONSTIPATION PROPHYLAXIS
     Route: 048
     Dates: start: 20210222
  33. POTASSIUM CHLORIDE SR TABLETS [Concomitant]
     Route: 048
     Dates: start: 20210405
  34. IBRUTINIB [Suspect]
     Active Substance: IBRUTINIB
     Indication: MANTLE CELL LYMPHOMA
     Route: 048
     Dates: start: 20210222, end: 20210409
  35. NORMAL SALINE SOLUTION (0.9% SODIUM CHLORIDE) [Concomitant]
     Route: 042
     Dates: start: 20210221, end: 20210221
  36. POSTERISAN FORTE [Concomitant]
     Active Substance: LIDOCAINE
     Indication: HAEMORRHOIDS
     Route: 054
     Dates: start: 201207
  37. VENETOCLAX. [Suspect]
     Active Substance: VENETOCLAX
     Route: 048
     Dates: start: 20210328, end: 20210409
  38. DENOSALIN 1 [Concomitant]
     Route: 042
     Dates: start: 20210309, end: 20210312
  39. SOLDEM 3A [Concomitant]
     Active Substance: CARBOHYDRATES\POTASSIUM CHLORIDE\SODIUM CHLORIDE\SODIUM LACTATE
     Dates: start: 20210225, end: 20210226
  40. SPIRIVA [Concomitant]
     Active Substance: TIOTROPIUM BROMIDE MONOHYDRATE
     Indication: CHRONIC OBSTRUCTIVE PULMONARY DISEASE
     Dosage: DOSE;2 INHALATION
     Route: 055
     Dates: start: 201207
  41. DERMOVATE OINTMENT [Concomitant]
     Active Substance: CLOBETASOL PROPIONATE
     Indication: ECZEMA ASTEATOTIC
     Dosage: DOSE; 1 APPLICATION
     Route: 061
     Dates: start: 20210305
  42. VENETOCLAX. [Suspect]
     Active Substance: VENETOCLAX
     Route: 048
     Dates: start: 20210316, end: 20210322
  43. VENETOCLAX. [Suspect]
     Active Substance: VENETOCLAX
     Route: 048
     Dates: start: 20210423
  44. SOLDEM 3A [Concomitant]
     Active Substance: CARBOHYDRATES\POTASSIUM CHLORIDE\SODIUM CHLORIDE\SODIUM LACTATE
     Dates: start: 20210224, end: 20210224
  45. ANTEBATE OINTMENT [Concomitant]
     Active Substance: BETAMETHASONE BUTYRATE PROPIONATE
     Indication: ECZEMA ASTEATOTIC
     Dosage: DOSE; 1 APPLICATION
     Route: 061
     Dates: start: 20210226

REACTIONS (1)
  - Sepsis [Recovered/Resolved]

NARRATIVE: CASE EVENT DATE: 20210409
